FAERS Safety Report 4305806-5 (Version None)
Quarter: 2004Q1

REPORT INFORMATION
  Report Type: 
  Country: None (occurrence: None)
  Receive Date: 20040225
  Receipt Date: 20040213
  Transmission Date: 20041129
  Serious: Yes (Hospitalization)
  Sender: FDA-Public Use
  Company Number: US-JNJFOC-20040203475

PATIENT
  Age: 15 Year
  Sex: Male

DRUGS (1)
  1. DURAGESIC [Suspect]
     Indication: INTENTIONAL MISUSE
     Dosage: 50 UG/HR, TRANSDERMAL; 100 UG/HR, TRANSDERMAL
     Route: 062
     Dates: start: 20040209, end: 20040210

REACTIONS (3)
  - LOSS OF CONSCIOUSNESS [None]
  - RESPIRATORY ARREST [None]
  - SELF-MEDICATION [None]
